FAERS Safety Report 21989455 (Version 6)
Quarter: 2024Q1

REPORT INFORMATION
  Report Type: Report from Study
  Country: US (occurrence: US)
  Receive Date: 20230214
  Receipt Date: 20240312
  Transmission Date: 20240409
  Serious: No
  Sender: FDA-Public Use
  Company Number: US-002147023-NVSC2023US033280

PATIENT
  Age: 18 Year
  Sex: Female
  Weight: 56.6 kg

DRUGS (3)
  1. ILARIS [Suspect]
     Active Substance: CANAKINUMAB
     Indication: Pyrexia
     Dosage: 150 MG, QMO
     Route: 058
     Dates: start: 20230119
  2. ILARIS [Suspect]
     Active Substance: CANAKINUMAB
     Dosage: 225 MG, Q4W (OTHER)
     Route: 058
     Dates: end: 20230713
  3. ILARIS [Suspect]
     Active Substance: CANAKINUMAB
     Dosage: 225 MG, Q4W, LEFT ARM
     Route: 065
     Dates: start: 20240213, end: 20240312

REACTIONS (8)
  - Pyrexia [Recovered/Resolved]
  - Infection [Recovering/Resolving]
  - Condition aggravated [Recovered/Resolved]
  - Fatigue [Recovered/Resolved]
  - Arthralgia [Recovered/Resolved]
  - Cough [Recovered/Resolved]
  - Oropharyngeal pain [Recovered/Resolved]
  - Headache [Recovered/Resolved]

NARRATIVE: CASE EVENT DATE: 20240222
